FAERS Safety Report 11749150 (Version 1)
Quarter: 2015Q4

REPORT INFORMATION
  Report Type: Spontaneous
  Country: US (occurrence: None)
  Receive Date: 20151117
  Receipt Date: 20151117
  Transmission Date: 20160304
  Serious: No
  Sender: FDA-Public Use
  Company Number: None

PATIENT
  Age: 65 Year
  Sex: Male

DRUGS (1)
  1. PUBLIX SALINE NASAL SPRAY PUBLIX [Suspect]
     Active Substance: SODIUM CHLORIDE
     Indication: NASAL DRYNESS
     Dates: start: 20151108, end: 20151108

REACTIONS (2)
  - Application site pain [None]
  - Chest discomfort [None]

NARRATIVE: CASE EVENT DATE: 20151108
